FAERS Safety Report 18600989 (Version 2)
Quarter: 2020Q4

REPORT INFORMATION
  Report Type: Spontaneous
  Country: ES (occurrence: ES)
  Receive Date: 20201210
  Receipt Date: 20201216
  Transmission Date: 20210114
  Serious: Yes (Hospitalization, Disabling)
  Sender: FDA-Public Use
  Company Number: ES-MYLANLABS-2020M1101947

PATIENT
  Age: 53 Year
  Sex: Male

DRUGS (2)
  1. PLENUR                             /00033702/ [Suspect]
     Active Substance: LITHIUM CARBONATE
     Indication: SCHIZOAFFECTIVE DISORDER
     Dosage: 600 MILLIGRAM, QD(400 MG-0-200 MG)
     Route: 048
     Dates: start: 20010101, end: 20160301
  2. LEPONEX [Suspect]
     Active Substance: CLOZAPINE
     Indication: SCHIZOAFFECTIVE DISORDER
     Dosage: 200 MILLIGRAM, Q8H
     Route: 048
     Dates: start: 19850101

REACTIONS (2)
  - Tubulointerstitial nephritis [Recovered/Resolved with Sequelae]
  - Chronic kidney disease [Recovered/Resolved with Sequelae]

NARRATIVE: CASE EVENT DATE: 20100101
